FAERS Safety Report 4844594-0 (Version None)
Quarter: 2005Q4

REPORT INFORMATION
  Report Type: 
  Country: None (occurrence: None)
  Receive Date: 20051129
  Receipt Date: 20051116
  Transmission Date: 20060501
  Serious: Yes (Life-Threatening, Hospitalization)
  Sender: FDA-Public Use
  Company Number: IN200511000896

PATIENT
  Age: 67 Year
  Sex: Male

DRUGS (3)
  1. DROTRECOGIN ALFA [Suspect]
     Indication: SEPSIS
     Dosage: 24 UG/KG/HR, 96 HRS, INTRAVENOUS
     Route: 042
     Dates: start: 20051031, end: 20051103
  2. SYSCAN (FLUCONAZOLE) [Concomitant]
  3. ASPIRIN [Concomitant]

REACTIONS (5)
  - CANDIDIASIS [None]
  - CORONARY ARTERY DISEASE [None]
  - MYOCARDIAL ISCHAEMIA [None]
  - PSEUDOMONAS INFECTION [None]
  - PULMONARY OEDEMA [None]
